FAERS Safety Report 6118881-2 (Version None)
Quarter: 2009Q1

REPORT INFORMATION
  Report Type: 
  Country: None (occurrence: None)
  Receive Date: 20090316
  Receipt Date: 20090311
  Transmission Date: 20090719
  Serious: Yes (Death)
  Sender: FDA-Public Use
  Company Number: JAOCAN1999000330

PATIENT
  Sex: Male

DRUGS (7)
  1. DURAGESIC-100 [Suspect]
     Indication: PAIN
     Route: 062
     Dates: start: 19980409
  2. FLUOXETINE [Suspect]
     Indication: DEPRESSION
     Route: 048
  3. LORAZEPAM [Concomitant]
     Indication: ANXIETY
     Route: 048
  4. ZOPICLONE [Concomitant]
     Indication: INSOMNIA
     Route: 048
  5. WARFARIN SODIUM [Concomitant]
     Indication: COAGULOPATHY
     Route: 048
  6. ACETAMINOPHEN [Concomitant]
  7. DIPHENHYDRAMINE HCL [Concomitant]

REACTIONS (4)
  - ARRHYTHMIA [None]
  - DRUG ADMINISTRATION ERROR [None]
  - OEDEMA [None]
  - PULMONARY CONGESTION [None]
